FAERS Safety Report 17092379 (Version 1)
Quarter: 2019Q4

REPORT INFORMATION
  Report Type: Spontaneous
  Country: NO (occurrence: NO)
  Receive Date: 20191129
  Receipt Date: 20191129
  Transmission Date: 20200122
  Serious: Yes (Other)
  Sender: FDA-Public Use
  Company Number: NO-PFIZER INC-2019510855

PATIENT
  Age: 20 Year
  Sex: Female
  Weight: 89 kg

DRUGS (4)
  1. COD LIVER [Concomitant]
     Active Substance: COD LIVER OIL
  2. ZINC. [Concomitant]
     Active Substance: ZINC
  3. LOETTE-28 [Suspect]
     Active Substance: ETHINYL ESTRADIOL\LEVONORGESTREL
     Indication: CONTRACEPTION
     Dosage: 1 DF, 1X/DAY
     Dates: start: 20100301, end: 20190202
  4. MAGNESIUM [Concomitant]
     Active Substance: MAGNESIUM

REACTIONS (6)
  - Overweight [Recovering/Resolving]
  - Fatigue [Recovering/Resolving]
  - Facial asymmetry [Recovering/Resolving]
  - Somnolence [Recovering/Resolving]
  - Depressed level of consciousness [Recovering/Resolving]
  - Libido decreased [Recovering/Resolving]

NARRATIVE: CASE EVENT DATE: 20100301
